FAERS Safety Report 4286483-9 (Version None)
Quarter: 2004Q1

REPORT INFORMATION
  Report Type: 
  Country: None (occurrence: None)
  Receive Date: 20040205
  Receipt Date: 20040205
  Transmission Date: 20041129
  Serious: Yes (Death)
  Sender: FDA-Public Use
  Company Number: None

PATIENT
  Age: 70 Year
  Sex: Male
  Weight: 67.1324 kg

DRUGS (4)
  1. IRESSA [Suspect]
     Indication: LUNG NEOPLASM MALIGNANT
     Dosage: 250 MG PO QD
     Route: 048
     Dates: start: 20030513, end: 20030909
  2. TAXOTERE [Suspect]
     Indication: LUNG NEOPLASM MALIGNANT
     Dosage: 60-70MG IV Q WK
     Route: 042
     Dates: start: 20030920, end: 20031220
  3. CARBOPLATIN [Concomitant]
  4. PACLITAXEL [Concomitant]

REACTIONS (2)
  - DYSPNOEA [None]
  - HYPOXIA [None]
